FAERS Safety Report 9080495 (Version 1)
Quarter: 2013Q1

REPORT INFORMATION
  Report Type: Report from Study
  Country: US (occurrence: US)
  Receive Date: 20130130
  Receipt Date: 20130130
  Transmission Date: 20140127
  Serious: No
  Sender: FDA-Public Use
  Company Number: US-ABBOTT-12P-163-0965375-00

PATIENT
  Age: 62 Year
  Sex: Female

DRUGS (13)
  1. HUMIRA 40 MG/0.8 ML PEN [Suspect]
     Indication: RHEUMATOID ARTHRITIS
     Dates: start: 200807
  2. CENTRUM SILVER VITAMINS [Concomitant]
     Indication: VITAMIN SUPPLEMENTATION
     Dosage: DAILY
     Route: 048
  3. METHOTREXATE [Concomitant]
     Indication: RHEUMATOID ARTHRITIS
     Dosage: 2.5 MG X 8 TABLETS WEEKLY
     Route: 048
  4. VITAMIN D [Concomitant]
     Indication: RHEUMATOID ARTHRITIS
     Dosage: 800 UNITS DAILY
     Route: 048
  5. FOLIC ACID [Concomitant]
     Indication: RHEUMATOID ARTHRITIS
     Dosage: 1MG X 4 TABLETS DAILY
  6. TYLENOL ARTHRITIS [Concomitant]
     Indication: RHEUMATOID ARTHRITIS
     Dosage: 650 MG DAILY
     Route: 048
  7. NAPROXEN [Concomitant]
     Indication: RHEUMATOID ARTHRITIS
     Dosage: 500 MG X 1-2 TABLETS DAILY
     Route: 048
  8. METOPROLOL [Concomitant]
     Indication: HYPERTENSION
     Dosage: 50 MG DAILY
     Route: 048
  9. HYZAAR [Concomitant]
     Indication: HYPERTENSION
     Dosage: 12.5/50 MG DAILY
     Route: 048
  10. POTASSIUM CHLORIDE [Concomitant]
     Indication: MINERAL SUPPLEMENTATION
     Dosage: 10 MEQ DAILY
     Route: 048
  11. SYNTHROID [Concomitant]
     Indication: HYPOTHYROIDISM
     Dosage: 0.125 MCG DAILY
     Route: 048
  12. BONIVA [Concomitant]
     Indication: ARTHRITIS
     Route: 048
  13. ZOCOR [Concomitant]
     Indication: BLOOD CHOLESTEROL INCREASED
     Dosage: 40 MG DAILY
     Route: 048

REACTIONS (1)
  - Injection site pain [Recovered/Resolved]
